FAERS Safety Report 15432714 (Version 2)
Quarter: 2019Q2

REPORT INFORMATION
  Report Type: Spontaneous
  Country: US (occurrence: US)
  Receive Date: 20180927
  Receipt Date: 20190503
  Transmission Date: 20190711
  Serious: No
  Sender: FDA-Public Use
  Company Number: US-SHIRE-US201837317

PATIENT
  Age: 77 Year
  Sex: Female

DRUGS (1)
  1. XIIDRA [Suspect]
     Active Substance: LIFITEGRAST
     Indication: MACULAR DEGENERATION
     Dosage: 2 GTT DROPS, 1X/DAY:QD
     Route: 047

REACTIONS (2)
  - Instillation site pain [Unknown]
  - Off label use [Unknown]
